FAERS Safety Report 11792686 (Version 3)
Quarter: 2015Q4

REPORT INFORMATION
  Report Type: Report from Study
  Country: DE (occurrence: DE)
  Receive Date: 20151202
  Receipt Date: 20151224
  Transmission Date: 20160305
  Serious: Yes (Hospitalization)
  Sender: FDA-Public Use
  Company Number: DE-ROCHE-1604722

PATIENT
  Age: 77 Year
  Sex: Male
  Weight: 74 kg

DRUGS (19)
  1. RITUXIMAB [Suspect]
     Active Substance: RITUXIMAB
     Dosage: CYCLE 5
     Route: 058
  2. RITUXIMAB [Suspect]
     Active Substance: RITUXIMAB
     Dosage: CYCLE 7
     Route: 058
  3. DARBEPOETIN ALFA [Concomitant]
     Active Substance: DARBEPOETIN ALFA
     Route: 065
  4. DEKRISTOL [Concomitant]
     Active Substance: CHOLECALCIFEROL
     Route: 065
  5. FUROSEMIDE. [Concomitant]
     Active Substance: FUROSEMIDE
     Route: 065
     Dates: start: 20150628, end: 20150701
  6. RITUXIMAB [Suspect]
     Active Substance: RITUXIMAB
     Dosage: CYCLE 6
     Route: 058
  7. BENDAMUSTINE [Suspect]
     Active Substance: BENDAMUSTINE
     Indication: LYMPHOPLASMACYTOID LYMPHOMA/IMMUNOCYTOMA
     Dosage: LAST DOSE PRIOR TO SAES: 18/JUN/2015, 17/JUL/2015.
     Route: 042
     Dates: start: 20150219
  8. BISOPROLOL [Concomitant]
     Active Substance: BISOPROLOL
     Route: 065
     Dates: start: 20150315
  9. ASPIRIN. [Concomitant]
     Active Substance: ASPIRIN
     Route: 065
  10. RITUXIMAB [Suspect]
     Active Substance: RITUXIMAB
     Dosage: CYCLE 2
     Route: 042
  11. RITUXIMAB [Suspect]
     Active Substance: RITUXIMAB
     Indication: LYMPHOPLASMACYTOID LYMPHOMA/IMMUNOCYTOMA
     Dosage: CYCLE 3?LAST DOSES PRIOR TO SAES: 17/JUN/2015, 15/JUL/2015, 30/SEP/2015
     Route: 058
  12. NYSTATIN. [Concomitant]
     Active Substance: NYSTATIN
     Dosage: 4X2
     Route: 065
  13. RITUXIMAB [Suspect]
     Active Substance: RITUXIMAB
     Dosage: CYCLE 8
     Route: 058
  14. BICANORM [Concomitant]
     Active Substance: SODIUM BICARBONATE
  15. PANTOPRAZOLE [Concomitant]
     Active Substance: PANTOPRAZOLE SODIUM
     Route: 065
  16. TORASEMID [Concomitant]
     Active Substance: TORSEMIDE
     Route: 065
  17. TAMSULOSIN [Concomitant]
     Active Substance: TAMSULOSIN
     Route: 065
     Dates: start: 20150704
  18. RITUXIMAB [Suspect]
     Active Substance: RITUXIMAB
     Indication: LYMPHOPLASMACYTOID LYMPHOMA/IMMUNOCYTOMA
     Dosage: CYCLE 1?LAST DOSES PRIOR TO SAES: 17/JUN/2015, 15/JUL/2015, 30/SEP/2015.
     Route: 042
     Dates: start: 20150219
  19. RITUXIMAB [Suspect]
     Active Substance: RITUXIMAB
     Dosage: CYCLE 4
     Route: 042

REACTIONS (5)
  - Confusional state [Not Recovered/Not Resolved]
  - Bronchitis [Not Recovered/Not Resolved]
  - Urinary tract infection [Not Recovered/Not Resolved]
  - Transient ischaemic attack [Recovered/Resolved]
  - Confusional state [Unknown]

NARRATIVE: CASE EVENT DATE: 20150628
